FAERS Safety Report 24970632 (Version 4)
Quarter: 2025Q1

REPORT INFORMATION
  Report Type: Report from Study
  Country: CA (occurrence: CA)
  Receive Date: 20250214
  Receipt Date: 20250318
  Transmission Date: 20250409
  Serious: Yes (Other)
  Sender: ABBVIE
  Company Number: CA-ABBVIE-6124252

PATIENT
  Age: 65 Year
  Sex: Male

DRUGS (1)
  1. SKYRIZI [Suspect]
     Active Substance: RISANKIZUMAB-RZAA
     Indication: Psoriasis
     Dosage: SKYRIZI INJ PFS/PEN
     Route: 058
     Dates: start: 20220601

REACTIONS (2)
  - Hip arthroplasty [Unknown]
  - Joint resurfacing surgery [Unknown]

NARRATIVE: CASE EVENT DATE: 20241205
